FAERS Safety Report 5922467-X (Version None)
Quarter: 2008Q4

REPORT INFORMATION
  Report Type: 
  Country: None (occurrence: None)
  Receive Date: 20081017
  Receipt Date: 20080812
  Transmission Date: 20090506
  Serious: Yes (Hospitalization)
  Sender: FDA-Public Use
  Company Number: US-BAYER-200818740GPV

PATIENT
  Age: 61 Year
  Sex: Female

DRUGS (16)
  1. CAMPATH [Suspect]
     Indication: CHRONIC LYMPHOCYTIC LEUKAEMIA
     Dosage: UNIT DOSE: 3 MG
     Route: 042
     Dates: start: 20080311, end: 20080311
  2. CAMPATH [Suspect]
     Dosage: UNIT DOSE: 10 MG
     Route: 042
     Dates: start: 20080312, end: 20080312
  3. CAMPATH [Suspect]
     Dosage: UNIT DOSE: 30 MG
     Route: 042
     Dates: start: 20080313, end: 20080313
  4. CAMPATH [Suspect]
     Dosage: UNIT DOSE: 30 MG
     Route: 042
     Dates: start: 20080512, end: 20080512
  5. CAMPATH [Suspect]
     Dosage: UNIT DOSE: 10 MG
     Route: 042
     Dates: start: 20080414, end: 20080416
  6. CAMPATH [Suspect]
     Dosage: UNIT DOSE: 10 MG
     Route: 042
     Dates: start: 20080317, end: 20080319
  7. FLUDARA [Suspect]
     Indication: CHRONIC LYMPHOCYTIC LEUKAEMIA
     Route: 042
     Dates: start: 20080317, end: 20080319
  8. FLUDARA [Suspect]
     Dosage: UNIT DOSE: 45 MG
     Route: 042
     Dates: start: 20080512, end: 20080512
  9. FLUDARA [Suspect]
     Dosage: UNIT DOSE: 45 MG
     Route: 042
     Dates: start: 20080414, end: 20080416
  10. BACTRIM [Concomitant]
     Indication: INFECTION PROPHYLAXIS
     Route: 065
     Dates: start: 20080311
  11. ACYCLOVIR [Concomitant]
     Indication: INFECTION PROPHYLAXIS
     Route: 065
     Dates: start: 20080311
  12. ACETAMINOPHEN [Concomitant]
     Indication: PREMEDICATION
     Dates: start: 20080512, end: 20080512
  13. SOLU-CORTEF [Concomitant]
     Indication: PREMEDICATION
     Route: 042
     Dates: start: 20080318, end: 20080319
  14. SOLU-CORTEF [Concomitant]
     Dates: start: 20080512, end: 20080512
  15. TAVEGYL [Concomitant]
     Indication: PREMEDICATION
     Dates: start: 20080512, end: 20080512
  16. PETIDIN [Concomitant]
     Indication: PREMEDICATION
     Dates: start: 20080512, end: 20080512

REACTIONS (9)
  - C-REACTIVE PROTEIN INCREASED [None]
  - CHEST DISCOMFORT [None]
  - CHILLS [None]
  - DRUG TOXICITY [None]
  - HAEMOGLOBIN DECREASED [None]
  - INFUSION RELATED REACTION [None]
  - LYMPHOCYTE COUNT DECREASED [None]
  - NEUTROPHIL COUNT DECREASED [None]
  - URTICARIA [None]
